FAERS Safety Report 5367561-X (Version None)
Quarter: 2007Q2

REPORT INFORMATION
  Report Type: 
  Country: None (occurrence: None)
  Receive Date: 20070622
  Receipt Date: 20070613
  Transmission Date: 20071010
  Serious: Yes (Death)
  Sender: FDA-Public Use
  Company Number: SE-SANOFI-SYNTHELABO-A01200706532

PATIENT
  Sex: Male

DRUGS (4)
  1. ZOLPIDEM TARTRATE [Suspect]
     Indication: POST PROCEDURAL COMPLICATION
     Dosage: 2.7 TABLETS DAILY
     Route: 048
     Dates: start: 20050101, end: 20060101
  2. ZOLPIDEM TARTRATE [Suspect]
     Indication: DRUG ABUSER
     Dosage: 2.7 TABLETS DAILY
     Route: 048
     Dates: start: 20050101, end: 20060101
  3. IMOVANE [Suspect]
     Indication: POST PROCEDURAL COMPLICATION
     Dosage: 3.4 TABLETS DAILY
     Route: 048
     Dates: start: 20050101, end: 20060101
  4. IMOVANE [Suspect]
     Indication: DRUG ABUSER
     Dosage: 3.4 TABLETS DAILY
     Route: 048
     Dates: start: 20050101, end: 20060101

REACTIONS (2)
  - DEATH [None]
  - DRUG ABUSER [None]
